FAERS Safety Report 6510103-3 (Version None)
Quarter: 2009Q4

REPORT INFORMATION
  Report Type: 
  Country: None (occurrence: None)
  Receive Date: 20091222
  Receipt Date: 20091109
  Transmission Date: 20100525
  Serious: No
  Sender: FDA-Public Use
  Company Number: US-BAUSCH-2009BL006085

PATIENT
  Age: 47 Year
  Sex: Female

DRUGS (2)
  1. ALAWAY [Suspect]
     Indication: OCULAR HYPERAEMIA
     Route: 047
     Dates: start: 20091107
  2. ALAWAY [Suspect]
     Indication: EYE ALLERGY
     Route: 047
     Dates: start: 20091107

REACTIONS (1)
  - INSTILLATION SITE IRRITATION [None]
